FAERS Safety Report 4435797-8 (Version None)
Quarter: 2004Q3

REPORT INFORMATION
  Report Type: 
  Country: None (occurrence: None)
  Receive Date: 20040726
  Receipt Date: 20040414
  Transmission Date: 20050211
  Serious: No
  Sender: FDA-Public Use
  Company Number: USA040465029

PATIENT
  Age: 73 Year
  Sex: Female

DRUGS (9)
  1. FORTEO [Suspect]
     Indication: OSTEOPOROSIS
     Dosage: 20 UG DAY
     Dates: start: 20040403
  2. PROZAC [Concomitant]
  3. METHADONE HCL [Concomitant]
  4. NEURONTIN [Concomitant]
  5. ASPIRIN [Concomitant]
  6. VITAMIN E [Concomitant]
  7. MORPHINE [Concomitant]
  8. VITAMIN CAP [Concomitant]
  9. PROVIGIL (MODAFINE) [Concomitant]

REACTIONS (3)
  - FAECAL INCONTINENCE [None]
  - INJECTION SITE ERYTHEMA [None]
  - LOOSE STOOLS [None]
